FAERS Safety Report 19778361 (Version 1)
Quarter: 2021Q3

REPORT INFORMATION
  Report Type: Spontaneous
  Country: US (occurrence: US)
  Receive Date: 20210830
  Receipt Date: 20210830
  Transmission Date: 20211014
  Serious: Yes (Hospitalization)
  Sender: FDA-Public Use
  Company Number: None

PATIENT
  Sex: Female

DRUGS (7)
  1. DOFETILIDE. [Concomitant]
     Active Substance: DOFETILIDE
  2. TORESEMIDE [Concomitant]
     Active Substance: TORSEMIDE
  3. HYDRO/APAP [Concomitant]
     Active Substance: ACETAMINOPHEN\HYDROCODONE
  4. NITROFU MAC [Concomitant]
  5. TIKOSYN [Concomitant]
     Active Substance: DOFETILIDE
  6. REPATHA [Suspect]
     Active Substance: EVOLOCUMAB
     Indication: TYPE V HYPERLIPIDAEMIA
     Route: 058
     Dates: start: 20200328
  7. CLOTRIMAZOLE. [Concomitant]
     Active Substance: CLOTRIMAZOLE

REACTIONS (1)
  - Atrial fibrillation [None]
